FAERS Safety Report 8935674 (Version 1)
Quarter: 2012Q4

REPORT INFORMATION
  Report Type: 
  Country: US (occurrence: US)
  Receive Date: 20121130
  Receipt Date: 20121130
  Transmission Date: 20130627
  Serious: Yes (Hospitalization, Other)
  Sender: FDA-Public Use
  Company Number: US-PFIZER INC-2012297502

PATIENT
  Age: 60 Year
  Sex: Male

DRUGS (15)
  1. ADVIL [Suspect]
     Indication: PAIN
     Dosage: unk, 4x/day
  2. LYRICA [Suspect]
     Indication: DRUG USE FOR UNKNOWN INDICATION
     Dosage: UNK
  3. REBIF [Suspect]
     Indication: MULTIPLE SCLEROSIS
     Dosage: 44 mcg, 3 in 1 week
     Route: 058
     Dates: start: 20021027
  4. GLUCOTROL [Concomitant]
     Indication: DIABETES MELLITUS
     Dosage: UNK
  5. NEURONTIN [Concomitant]
     Indication: NERVE PAIN
     Dosage: UNK
  6. TYLENOL [Concomitant]
     Indication: PAIN
     Dosage: UNK
  7. MIRAPEX [Concomitant]
     Indication: RESTLESS LEGS
     Dosage: UNK
  8. WELLBUTRIN [Concomitant]
     Indication: DEPRESSION
     Dosage: 150 mg- 200 mg
  9. CLOZAPINE [Concomitant]
     Indication: ANXIETY
     Dosage: 0.5 mg, 4x/day
  10. LISINOPRIL [Concomitant]
     Indication: BLOOD PRESSURE
     Dosage: UNK
  11. NORVASC [Concomitant]
     Indication: BLOOD PRESSURE
     Dosage: UNK
  12. PROSCAR [Concomitant]
     Indication: BLOOD PRESSURE
     Dosage: UNK
  13. SEROQUEL [Concomitant]
     Indication: BIPOLAR DISORDER
     Dosage: 200 mg, 4x/day
  14. LAMICTAL [Concomitant]
     Indication: DEPRESSION
     Dosage: UNK
  15. ZOLOFT [Concomitant]
     Indication: DEPRESSION
     Dosage: UNK

REACTIONS (4)
  - Renal failure acute [Recovering/Resolving]
  - Blood glucose decreased [Recovering/Resolving]
  - Constipation [Unknown]
  - Fatigue [Not Recovered/Not Resolved]
